FAERS Safety Report 6356640-6 (Version None)
Quarter: 2009Q3

REPORT INFORMATION
  Report Type: 
  Country: None (occurrence: None)
  Receive Date: 20090915
  Receipt Date: 20090904
  Transmission Date: 20100115
  Serious: No
  Sender: FDA-Public Use
  Company Number: US-B.I. PHARMACEUTICALS,INC./RIDGEFIELD-2009-BP-09022BP

PATIENT
  Sex: Female

DRUGS (24)
  1. SPIRIVA [Suspect]
     Indication: CHRONIC OBSTRUCTIVE PULMONARY DISEASE
     Dosage: 18 MCG
     Route: 055
     Dates: start: 20090101
  2. SPIRIVA [Suspect]
     Indication: ASTHMA
  3. ALBUTEROL [Concomitant]
     Indication: CHRONIC OBSTRUCTIVE PULMONARY DISEASE
     Route: 055
  4. ALBUTEROL [Concomitant]
     Indication: ASTHMA
  5. PULMICORT-100 [Concomitant]
     Indication: CHRONIC OBSTRUCTIVE PULMONARY DISEASE
  6. PULMICORT-100 [Concomitant]
     Indication: ASTHMA
  7. COMBIVENT [Concomitant]
     Indication: CHRONIC OBSTRUCTIVE PULMONARY DISEASE
  8. COMBIVENT [Concomitant]
     Indication: ASTHMA
  9. PROVENTIL-HFA [Concomitant]
     Indication: CHRONIC OBSTRUCTIVE PULMONARY DISEASE
     Route: 055
  10. PROVENTIL-HFA [Concomitant]
     Indication: ASTHMA
  11. WARFARIN SOD [Concomitant]
     Indication: ANTICOAGULANT THERAPY
     Route: 048
     Dates: start: 20000101
  12. WARFARIN SOD [Concomitant]
  13. DICYCLOMINE [Concomitant]
     Dosage: 60 MG
     Route: 048
  14. METFORMIN HCL [Concomitant]
     Dosage: 1000 MG
     Route: 048
  15. ACYCLOVIR [Concomitant]
     Dosage: 400 MG
  16. ARMOUR THYROID [Concomitant]
     Dosage: 60 MG
  17. LIPITOR [Concomitant]
     Dosage: 20 MG
  18. SINGULAIR [Concomitant]
     Dosage: 10 MG
  19. BENICAR HCT [Concomitant]
     Dosage: 20 MG
  20. FUROSEMIDE [Concomitant]
     Indication: JOINT SWELLING
  21. WALGREEN'S A-Z VITAMINS [Concomitant]
  22. TRADER JOE'S VITAMIN C [Concomitant]
  23. WALGREEN'S FINEST NATURAL VITAMIN D [Concomitant]
  24. WALGREEN'S CALCIUM [Concomitant]
     Indication: SLEEP DISORDER
     Dosage: 1500 MG

REACTIONS (1)
  - DRUG INEFFECTIVE [None]
